FAERS Safety Report 5382213-8 (Version None)
Quarter: 2007Q3

REPORT INFORMATION
  Report Type: 
  Country: None (occurrence: None)
  Receive Date: 20070709
  Receipt Date: 20070627
  Transmission Date: 20080115
  Serious: Yes (Other)
  Sender: FDA-Public Use
  Company Number: US-PFIZER INC-2007053790

PATIENT
  Sex: Male
  Weight: 89.8 kg

DRUGS (6)
  1. NEURONTIN [Suspect]
     Indication: POOR PERIPHERAL CIRCULATION
  2. ADVAIR DISKUS 100/50 [Concomitant]
  3. TERAZOSIN HCL [Concomitant]
  4. VERAPAMIL [Concomitant]
  5. ALLOPURINOL [Concomitant]
  6. ASPIRIN [Concomitant]

REACTIONS (2)
  - BENIGN PROSTATIC HYPERPLASIA [None]
  - PAIN [None]
